FAERS Safety Report 9240164 (Version 1)
Quarter: 2013Q2

REPORT INFORMATION
  Report Type: Spontaneous
  Country: US (occurrence: None)
  Receive Date: 20130417
  Receipt Date: 20130417
  Transmission Date: 20140414
  Serious: Yes (Other)
  Sender: FDA-Public Use
  Company Number: 001512989

PATIENT
  Age: 31 Year
  Sex: Female

DRUGS (5)
  1. PROACTIVE RENEWING CLEANSER [Suspect]
     Indication: ACNE
     Dosage: TWICE DAILY DERMAL
     Dates: start: 20130327, end: 20130328
  2. PROACTIV REPAIRING TREATMENT [Suspect]
     Indication: ACNE
     Dosage: TWICE DAILY DERMAL
     Dates: start: 20130327, end: 20130328
  3. PROACTIV REFINING MASK [Suspect]
     Indication: ACNE
     Dosage: TWICE DAILY DERMAL
     Dates: start: 20130327, end: 20130328
  4. PROACTIV OIL FREE MOISTURIZER SPF 15 [Suspect]
     Indication: ACNE
     Dosage: TWICE DAILY DERMAL
     Dates: start: 20130327, end: 20130328
  5. DAILY MULTIVITAMINS [Concomitant]

REACTIONS (4)
  - Rash erythematous [None]
  - Pruritus [None]
  - Eye swelling [None]
  - Burning sensation [None]
